FAERS Safety Report 7870924-1 (Version None)
Quarter: 2011Q4

REPORT INFORMATION
  Report Type: 
  Country: None (occurrence: None)
  Receive Date: 20111027
  Receipt Date: 20111014
  Transmission Date: 20120403
  Serious: Yes (Other)
  Sender: FDA-Public Use
  Company Number: 2011MA015160

PATIENT
  Sex: Female

DRUGS (2)
  1. RAMIPRIL [Suspect]
  2. MULTIPLE DRUGS [Concomitant]

REACTIONS (1)
  - GASTROINTESTINAL ULCER [None]
